FAERS Safety Report 9437165 (Version 1)
Quarter: 2013Q3

REPORT INFORMATION
  Report Type: Spontaneous
  Country: US (occurrence: US)
  Receive Date: 20130802
  Receipt Date: 20130802
  Transmission Date: 20140515
  Serious: Yes (Other)
  Sender: FDA-Public Use
  Company Number: US-009507513-1307USA014635

PATIENT
  Sex: Male

DRUGS (2)
  1. DULERA [Suspect]
     Indication: CHRONIC OBSTRUCTIVE PULMONARY DISEASE
     Dosage: 200/5MICROGRAMS, TWO PUFFS BID
     Route: 055
  2. ADVAIR [Concomitant]
     Dosage: UNK

REACTIONS (1)
  - Aphonia [Not Recovered/Not Resolved]
